FAERS Safety Report 10544270 (Version 3)
Quarter: 2014Q4

REPORT INFORMATION
  Report Type: Report from Study
  Country: US (occurrence: US)
  Receive Date: 20141027
  Receipt Date: 20141224
  Transmission Date: 20150529
  Serious: Yes (Hospitalization)
  Sender: FDA-Public Use
  Company Number: US-ACTELION-A-US2014-106862

PATIENT
  Age: 63 Year
  Sex: Male

DRUGS (2)
  1. TRACLEER [Suspect]
     Active Substance: BOSENTAN\BOSENTAN MONOHYDRATE
     Indication: PULMONARY ARTERIAL HYPERTENSION
     Dosage: UNK
     Route: 048
  2. PLAVIX [Concomitant]
     Active Substance: CLOPIDOGREL BISULFATE

REACTIONS (6)
  - Carbon dioxide increased [Unknown]
  - Respiratory tract haemorrhage [Unknown]
  - Dyspnoea [Unknown]
  - Lung disorder [Unknown]
  - Carbon monoxide poisoning [Unknown]
  - Device malfunction [Unknown]

NARRATIVE: CASE EVENT DATE: 201409
